FAERS Safety Report 7061867-4 (Version None)
Quarter: 2010Q4

REPORT INFORMATION
  Report Type: 
  Country: None (occurrence: None)
  Receive Date: 20101026
  Receipt Date: 20101020
  Transmission Date: 20110411
  Serious: Yes (Death)
  Sender: FDA-Public Use
  Company Number: CA-ROCHE-698721

PATIENT
  Sex: Female
  Weight: 89.6 kg

DRUGS (7)
  1. BEVACIZUMAB [Suspect]
     Indication: BREAST CANCER
     Dosage: FORM: VIAL
     Route: 042
     Dates: start: 20090422, end: 20100411
  2. CYCLOPHOSPHAMIDE [Suspect]
     Indication: BREAST CANCER
     Dosage: FORM: VIAL
     Route: 042
     Dates: start: 20090422
  3. EPIRUBICIN [Suspect]
     Indication: BREAST CANCER
     Dosage: FORM: VIAL
     Route: 042
     Dates: start: 20090422
  4. FLUOROURACIL [Suspect]
     Indication: BREAST CANCER
     Dosage: FORM: VIAL
     Route: 042
     Dates: start: 20090422
  5. DOCETAXEL [Suspect]
     Indication: BREAST CANCER
     Dosage: FORM: VIAL
     Route: 042
     Dates: start: 20090625
  6. RAMIPRIL [Concomitant]
     Dates: start: 20090805
  7. SPIRIVA [Concomitant]
     Dosage: TOTAL DAILY DOSE AS 1 PUFF
     Dates: start: 20060401

REACTIONS (1)
  - CORONARY ARTERY DISEASE [None]
